FAERS Safety Report 5139804-9 (Version None)
Quarter: 2006Q4

REPORT INFORMATION
  Report Type: 
  Country: None (occurrence: None)
  Receive Date: 20061025
  Receipt Date: 20060420
  Transmission Date: 20070319
  Serious: Yes (Death)
  Sender: FDA-Public Use
  Company Number: S06-USA-04377-01

PATIENT
  Age: 13 Year
  Sex: Male
  Weight: 60.782 kg

DRUGS (3)
  1. LEXAPRO [Suspect]
     Indication: DEPRESSION
     Dosage: 20 MG QD PO
     Route: 048
     Dates: start: 20040101, end: 20040608
  2. LEXAPRO [Suspect]
     Indication: DEPRESSION
     Dosage: 10 MG QD PO
     Route: 048
     Dates: start: 20040701, end: 20040101
  3. RISPERDAL [Concomitant]

REACTIONS (8)
  - COMPLETED SUICIDE [None]
  - CONJUNCTIVAL HAEMORRHAGE [None]
  - DRUG LEVEL INCREASED [None]
  - EXCORIATION [None]
  - INJURY ASPHYXIATION [None]
  - ORAL MUCOSAL PETECHIAE [None]
  - PETECHIAE [None]
  - UNEVALUABLE EVENT [None]
